FAERS Safety Report 4642743-0 (Version None)
Quarter: 2005Q2

REPORT INFORMATION
  Report Type: 
  Country: None (occurrence: None)
  Receive Date: 20050420
  Receipt Date: 20050407
  Transmission Date: 20051028
  Serious: Yes (Hospitalization, Other)
  Sender: FDA-Public Use
  Company Number: HQWYE892008MAR05

PATIENT
  Age: 38 Year
  Sex: Male

DRUGS (10)
  1. RAPAMUNE [Suspect]
     Indication: PROPHYLAXIS AGAINST TRANSPLANT REJECTION
     Dosage: 8 MG 1X PER 1 DAY ORAL
     Route: 048
     Dates: start: 20030307, end: 20050309
  2. SEPTRA [Concomitant]
  3. FERROUS SULFATE TAB [Concomitant]
  4. ARANESP [Concomitant]
  5. LOSARTAN (LOSARTAN) [Concomitant]
  6. CARVEDILOL [Concomitant]
  7. ENALAPRIL MALEATE [Concomitant]
  8. ATORVASTATIN CALCIUM [Concomitant]
  9. MYCOPHENOLATE MOFETIL (MYCOPHENOLATE MOFETIL) [Concomitant]
  10. PREDNISONE [Concomitant]

REACTIONS (4)
  - COOMBS TEST NEGATIVE [None]
  - GENERALISED OEDEMA [None]
  - MICROANGIOPATHIC HAEMOLYTIC ANAEMIA [None]
  - PROTEIN URINE [None]
